FAERS Safety Report 17676313 (Version 4)
Quarter: 2021Q4

REPORT INFORMATION
  Report Type: Spontaneous
  Country: US (occurrence: US)
  Receive Date: 20200416
  Receipt Date: 20211002
  Transmission Date: 20220303
  Serious: Yes (Other)
  Sender: FDA-Public Use
  Company Number: US-SHIRE-US202013575

PATIENT
  Sex: Female

DRUGS (3)
  1. NATPARA (PARATHYROID HORMONE) [Suspect]
     Active Substance: PARATHYROID HORMONE
     Indication: Product used for unknown indication
     Dosage: 25 MICROGRAM, QD
     Route: 058
  2. NATPARA (PARATHYROID HORMONE) [Suspect]
     Active Substance: PARATHYROID HORMONE
     Indication: Product used for unknown indication
     Dosage: 25 MICROGRAM, QD
     Route: 058
  3. NATPARA (PARATHYROID HORMONE) [Suspect]
     Active Substance: PARATHYROID HORMONE
     Indication: Product used for unknown indication
     Dosage: 25 MICROGRAM, QD
     Route: 058

REACTIONS (6)
  - Cardiac flutter [Unknown]
  - Injection site pain [Unknown]
  - Visual impairment [Unknown]
  - Product administration error [Unknown]
  - Product dose omission issue [Recovered/Resolved]
  - Device ineffective [Unknown]

NARRATIVE: CASE EVENT DATE: 20200516
